FAERS Safety Report 21228556 (Version 1)
Quarter: 2022Q3

REPORT INFORMATION
  Report Type: Spontaneous
  Country: ES (occurrence: ES)
  Receive Date: 20220818
  Receipt Date: 20220818
  Transmission Date: 20221027
  Serious: Yes (Hospitalization)
  Sender: FDA-Public Use
  Company Number: ES-SUN PHARMACEUTICAL INDUSTRIES LTD-2022RR-349178

PATIENT
  Age: 77 Year
  Sex: Female

DRUGS (5)
  1. ALPRAZOLAM [Suspect]
     Active Substance: ALPRAZOLAM
     Indication: Intentional overdose
     Dosage: UNK
     Route: 048
     Dates: start: 20220613, end: 20220613
  2. ASTUDAL 10 mg TABLETS, 30 tablets [Concomitant]
     Indication: Hypertension
     Dosage: 10 MILLIGRAM, DAILY
     Route: 048
     Dates: start: 201205
  3. CIDINE 1 mg/5 ml ORAL SOLUTION, 1 bottle of 250 ml [Concomitant]
     Indication: Gastrooesophageal reflux disease
     Dosage: 2 MILLILITER, DAILY
     Route: 048
     Dates: start: 201506, end: 20220613
  4. ELIQUIS 5 MG FILM-COATED TABLET, 28 tablets [Concomitant]
     Indication: Atrial fibrillation
     Dosage: UNK
     Route: 065
  5. SOLUDRONATE SEMANAL 70 MG ORAL SOLUTION 4 unit dose bottles of 100 ml [Concomitant]
     Indication: Osteoporosis
     Dosage: 70 MILLIGRAM, 1/WEEK
     Route: 048
     Dates: start: 20220525, end: 20220613

REACTIONS (2)
  - Confusional state [Recovered/Resolved]
  - Intentional overdose [Recovered/Resolved]

NARRATIVE: CASE EVENT DATE: 20220613
